FAERS Safety Report 11230512 (Version 1)
Quarter: 2015Q2

REPORT INFORMATION
  Report Type: Spontaneous
  Country: US (occurrence: None)
  Receive Date: 20150630
  Receipt Date: 20150630
  Transmission Date: 20150821
  Serious: No
  Sender: FDA-Public Use
  Company Number: None

PATIENT
  Age: 45 Year
  Sex: Female
  Weight: 79.38 kg

DRUGS (2)
  1. MIRVASO [Suspect]
     Active Substance: BRIMONIDINE TARTRATE
     Indication: ROSACEA
     Dosage: APPLY THIN LAYER?APPLIED TO A SURFACE, USUALLY THE SKIN
     Route: 061
     Dates: start: 20150619, end: 20150626
  2. MIRENA [Concomitant]
     Active Substance: LEVONORGESTREL

REACTIONS (5)
  - Application site swelling [None]
  - Erythema [None]
  - Application site pain [None]
  - Flushing [None]
  - Application site erythema [None]

NARRATIVE: CASE EVENT DATE: 20150625
